FAERS Safety Report 8136008-2 (Version None)
Quarter: 2012Q1

REPORT INFORMATION
  Report Type: 
  Country: None (occurrence: None)
  Receive Date: 20120209
  Receipt Date: 20120203
  Transmission Date: 20120608
  Serious: Yes (Disabling)
  Sender: FDA-Public Use
  Company Number: 2012SP006643

PATIENT
  Sex: Male

DRUGS (2)
  1. PEGINTERFERON ALFA-2B [Suspect]
     Dosage: 1 DF; 1 DF
     Dates: start: 20120117
  2. PEGINTERFERON ALFA-2B [Suspect]
     Dosage: 1 DF; 1 DF
     Dates: start: 20120124

REACTIONS (3)
  - PHOTOSENSITIVITY REACTION [None]
  - HEADACHE [None]
  - CHEMICAL EYE INJURY [None]
